FAERS Safety Report 24686555 (Version 1)
Quarter: 2024Q4

REPORT INFORMATION
  Report Type: Spontaneous
  Country: US (occurrence: US)
  Receive Date: 20241202
  Receipt Date: 20241202
  Transmission Date: 20250115
  Serious: Yes (Hospitalization)
  Sender: MYLAN
  Company Number: US-MYLANLABS-2024M1106102

PATIENT
  Age: 24 Year
  Sex: Male

DRUGS (2)
  1. MESALAMINE [Suspect]
     Active Substance: MESALAMINE
     Indication: Colitis ulcerative
     Dosage: UNK
     Route: 065
  2. MESALAMINE [Suspect]
     Active Substance: MESALAMINE
     Dosage: INGESTION OF EXTRA DOSES OF THE MESALAZINE (OVERDOSE)
     Route: 048

REACTIONS (2)
  - Overdose [Recovering/Resolving]
  - Glomerulonephritis minimal lesion [Recovering/Resolving]
